FAERS Safety Report 4356252-X (Version None)
Quarter: 2004Q2

REPORT INFORMATION
  Report Type: 
  Country: None (occurrence: None)
  Receive Date: 20040511
  Receipt Date: 20040427
  Transmission Date: 20050107
  Serious: Yes (Disabling, Other)
  Sender: FDA-Public Use
  Company Number: CH-SHR-04-023226

PATIENT
  Age: 3 Month
  Sex: Male
  Weight: 3 kg

DRUGS (3)
  1. ULTRAVIST 300 [Suspect]
     Indication: CHOLANGIOGRAM
     Dosage: SEE IMAGE
     Route: 054
     Dates: start: 20040130, end: 20040130
  2. ULTRAVIST 300 [Suspect]
     Indication: CHOLANGIOGRAM
     Dosage: SEE IMAGE
     Route: 054
     Dates: start: 20040207, end: 20040207
  3. A MULTITUDE OF CONCOMITANT DRUGS [Concomitant]

REACTIONS (2)
  - CONGENITAL ABSENCE OF BILE DUCTS [None]
  - HYPOTHYROIDISM [None]
